FAERS Safety Report 20740120 (Version 2)
Quarter: 2022Q4

REPORT INFORMATION
  Report Type: Spontaneous
  Country: US (occurrence: US)
  Receive Date: 20220422
  Receipt Date: 20221005
  Transmission Date: 20230113
  Serious: Yes (Other)
  Sender: FDA-Public Use
  Company Number: US-PFIZER INC-202200203306

PATIENT
  Age: 42 Year
  Sex: Female

DRUGS (2)
  1. XELJANZ [Suspect]
     Active Substance: TOFACITINIB CITRATE
     Indication: Colitis ulcerative
     Dosage: 10 MG, 2X/DAY (10MG TWICE DAILY)
     Route: 048
     Dates: start: 201908, end: 202201
  2. XELJANZ [Suspect]
     Active Substance: TOFACITINIB CITRATE
     Dosage: 5 MG, 2X/DAY (5MG TWICE DAILY)
     Route: 048
     Dates: start: 202201

REACTIONS (6)
  - Rectal haemorrhage [Unknown]
  - Off label use [Unknown]
  - Fatigue [Unknown]
  - Memory impairment [Unknown]
  - Frequent bowel movements [Unknown]
  - Intentional dose omission [Unknown]
